FAERS Safety Report 13555410 (Version 1)
Quarter: 2017Q2

REPORT INFORMATION
  Report Type: Spontaneous
  Country: US (occurrence: US)
  Receive Date: 20170517
  Receipt Date: 20170517
  Transmission Date: 20170830
  Serious: Yes (Death, Other)
  Sender: FDA-Public Use
  Company Number: US-APOPHARMA USA, INC.-2017AP012254

PATIENT
  Age: 55 Year
  Sex: Male

DRUGS (3)
  1. TESTOSTERONE ENANTHATE. [Suspect]
     Active Substance: TESTOSTERONE ENANTHATE
     Indication: PRODUCT USED FOR UNKNOWN INDICATION
     Dosage: 400 MG, Q.WK.
     Route: 030
     Dates: start: 196505, end: 196902
  2. ALKERAN [Suspect]
     Active Substance: MELPHALAN
     Indication: PLASMA CELL MYELOMA
     Dosage: UNK
     Route: 048
     Dates: start: 196505, end: 196603
  3. ALKERAN [Suspect]
     Active Substance: MELPHALAN
     Dosage: UNK
     Route: 048
     Dates: start: 196603, end: 196902

REACTIONS (1)
  - Acute myelomonocytic leukaemia [Fatal]
